FAERS Safety Report 8221906-1 (Version None)
Quarter: 2012Q1

REPORT INFORMATION
  Report Type: 
  Country: None (occurrence: None)
  Receive Date: 20120320
  Receipt Date: 20120308
  Transmission Date: 20120608
  Serious: Yes (Other)
  Sender: FDA-Public Use
  Company Number: CA-JNJFOC-20120304554

PATIENT
  Sex: Female
  Weight: 128 kg

DRUGS (9)
  1. VITAMIN D [Concomitant]
     Route: 048
  2. RELPAX [Concomitant]
     Indication: MIGRAINE
     Route: 065
  3. REMICADE [Suspect]
     Route: 042
     Dates: start: 20120112, end: 20120112
  4. SINGULAIR [Concomitant]
     Route: 065
  5. FOLIC ACID [Concomitant]
     Route: 048
  6. ZOPICLONE [Concomitant]
     Route: 048
  7. REMICADE [Suspect]
     Indication: CROHN'S DISEASE
     Route: 042
     Dates: start: 20120308
  8. ASCORBIC ACID [Concomitant]
     Route: 065
  9. DESLORATADINE [Concomitant]
     Dosage: USUALLY TWO PER DAY.
     Route: 065

REACTIONS (2)
  - NECK PAIN [None]
  - PARAESTHESIA [None]
